FAERS Safety Report 9461504 (Version 2)
Quarter: 2013Q3

REPORT INFORMATION
  Report Type: Report from Study
  Country: CA (occurrence: CA)
  Receive Date: 20130816
  Receipt Date: 20130916
  Transmission Date: 20140515
  Serious: Yes (Death)
  Sender: FDA-Public Use
  Company Number: PHHY2013CA088021

PATIENT
  Age: 46 Year
  Sex: Male

DRUGS (5)
  1. CLOZARIL [Suspect]
     Indication: SCHIZOPHRENIA
     Dosage: 50 MG, DAILY
     Route: 048
     Dates: start: 20130710
  2. CLONAZEPAM [Concomitant]
     Dosage: 15 MG, PRN
  3. ADDERALL [Concomitant]
     Dosage: 30 MG, BID
  4. COVERSYL [Concomitant]
     Dosage: 4 MG, DAILY
  5. LIPITOR [Concomitant]
     Dosage: 40 MG, UNK

REACTIONS (2)
  - Drowning [Fatal]
  - Accidental death [Fatal]
